FAERS Safety Report 17437395 (Version 1)
Quarter: 2020Q1

REPORT INFORMATION
  Report Type: Spontaneous
  Country: CN (occurrence: CN)
  Receive Date: 20200219
  Receipt Date: 20200219
  Transmission Date: 20200409
  Serious: Yes (Hospitalization)
  Sender: FDA-Public Use
  Company Number: CN-AKRON, INC.-2080686

PATIENT
  Age: 12 Month
  Sex: Female

DRUGS (9)
  1. AMIKACIN SULFATE. [Suspect]
     Active Substance: AMIKACIN SULFATE
  2. CIPROFLOXACIN HYDROCHLORIDE SOLUTION [Suspect]
     Active Substance: CIPROFLOXACIN HYDROCHLORIDE
     Indication: MENINGITIS
  3. LEVOFLOXACIN. [Suspect]
     Active Substance: LEVOFLOXACIN
  4. CEFIXIME. [Suspect]
     Active Substance: CEFIXIME
  5. CEFOTAXIME [Suspect]
     Active Substance: CEFOTAXIME SODIUM
  6. CEFTRIAXONE. [Suspect]
     Active Substance: CEFTRIAXONE
  7. TOBRAMYCIN. [Suspect]
     Active Substance: TOBRAMYCIN
  8. PENICILLIUM [Suspect]
     Active Substance: PENICILLIUM CHRYSOGENUM VAR. CHRYSOGENUM
  9. VANCOMYCIN HYDROCHLORIDE. [Suspect]
     Active Substance: VANCOMYCIN HYDROCHLORIDE

REACTIONS (2)
  - Multiple-drug resistance [Recovered/Resolved]
  - Meningitis bacterial [Recovered/Resolved]
